APPROVED DRUG PRODUCT: VAPRISOL
Active Ingredient: CONIVAPTAN HYDROCHLORIDE
Strength: 20MG/4ML (5MG/ML)
Dosage Form/Route: INJECTABLE;INTRAVENOUS
Application: N021697 | Product #001
Applicant: CUMBERLAND PHARMACEUTICALS INC
Approved: Dec 29, 2005 | RLD: No | RS: No | Type: DISCN